FAERS Safety Report 6387566-X (Version None)
Quarter: 2009Q4

REPORT INFORMATION
  Report Type: 
  Country: None (occurrence: None)
  Receive Date: 20091005
  Receipt Date: 20090924
  Transmission Date: 20100525
  Serious: Yes (Hospitalization)
  Sender: FDA-Public Use
  Company Number: US-RANBAXY-2009RR-28249

PATIENT
  Age: 70 Year
  Sex: Male

DRUGS (29)
  1. FLUCONAZOLE [Suspect]
     Route: 048
  2. DEXAMETHASONE 0.5MG TAB [Suspect]
     Indication: MULTIPLE MYELOMA
  3. THALIDOMIDE [Suspect]
     Indication: MULTIPLE MYELOMA
  4. MELOXICAM [Suspect]
     Indication: MULTIPLE MYELOMA
  5. PAMIDRONATE DISODIUM [Suspect]
     Indication: MULTIPLE MYELOMA
     Dosage: UNK
  6. CEFEPIME [Suspect]
     Route: 042
  7. VANCOMYCIN [Suspect]
     Route: 042
  8. MORPHINE [Suspect]
  9. PARACETAMOL [Suspect]
  10. HEPARIN [Suspect]
  11. ENOXAPARIN SODIUM [Suspect]
  12. RANITIDINE [Concomitant]
     Indication: MULTIPLE MYELOMA
  13. HYDROCODONE [Concomitant]
     Indication: MULTIPLE MYELOMA
  14. OMEPRAZOLE [Concomitant]
     Indication: MULTIPLE MYELOMA
  15. PROMETHAZINE [Concomitant]
     Indication: MULTIPLE MYELOMA
  16. LIDOCAINE [Concomitant]
     Indication: MULTIPLE MYELOMA
  17. PEG-3350 [Concomitant]
     Indication: MULTIPLE MYELOMA
  18. TESTOSTERONE ENANTHATE [Concomitant]
     Indication: MULTIPLE MYELOMA
  19. NALOXONE [Concomitant]
  20. PANTOPRAZOLE SODIUM [Concomitant]
  21. DIPHENHYDRAMINE HCL [Concomitant]
  22. ZOLPIDEM [Concomitant]
  23. AMIODARONE [Concomitant]
  24. ALPRAZOLAM [Concomitant]
  25. NEUPOGEN [Concomitant]
  26. MEROPENEM [Concomitant]
     Route: 042
  27. DAPTOMYCIN [Concomitant]
  28. TOBRAMYCIN [Concomitant]
  29. CASPOFUNGIN [Concomitant]

REACTIONS (1)
  - ACUTE GENERALISED EXANTHEMATOUS PUSTULOSIS [None]
